FAERS Safety Report 9422324 (Version 1)
Quarter: 2013Q3

REPORT INFORMATION
  Report Type: Spontaneous
  Country: DE (occurrence: None)
  Receive Date: 20130722
  Receipt Date: 20130722
  Transmission Date: 20140515
  Serious: Yes (Life-Threatening, Hospitalization)
  Sender: FDA-Public Use
  Company Number: 13-1921

PATIENT
  Age: 36 Year
  Sex: Female
  Weight: 50 kg

DRUGS (1)
  1. BOTULINUM TOXIN [Suspect]
     Indication: OESOPHAGEAL ACHALASIA
     Dosage: 1 IN 1 TOTAL
     Dates: start: 20130525, end: 20130525

REACTIONS (3)
  - Dyspnoea [None]
  - Diaphragmatic paralysis [None]
  - Hypercapnia [None]
